FAERS Safety Report 5818396-2 (Version None)
Quarter: 2008Q3

REPORT INFORMATION
  Report Type: 
  Country: None (occurrence: None)
  Receive Date: 20080722
  Receipt Date: 20080715
  Transmission Date: 20090109
  Serious: Yes (Other)
  Sender: FDA-Public Use
  Company Number: GB-PFIZER INC-2008059274

PATIENT
  Age: 28 Year
  Sex: Female

DRUGS (1)
  1. CHANTIX [Suspect]
     Indication: SMOKING CESSATION THERAPY
     Route: 048
     Dates: start: 20080623, end: 20080629

REACTIONS (7)
  - AGGRESSION [None]
  - ANGER [None]
  - DEPRESSION [None]
  - MOOD ALTERED [None]
  - SLEEP DISORDER [None]
  - TEARFULNESS [None]
  - THINKING ABNORMAL [None]
